FAERS Safety Report 24779608 (Version 2)
Quarter: 2025Q1

REPORT INFORMATION
  Report Type: Spontaneous
  Country: US (occurrence: US)
  Receive Date: 20241226
  Receipt Date: 20250129
  Transmission Date: 20250409
  Serious: Yes (Other)
  Sender: JOHNSON AND JOHNSON
  Company Number: US-JNJFOC-20241247793

PATIENT
  Age: 58 Year
  Sex: Female
  Weight: 139 kg

DRUGS (2)
  1. TREMFYA [Suspect]
     Active Substance: GUSELKUMAB
     Indication: Psoriasis
     Route: 065
  2. TREMFYA [Suspect]
     Active Substance: GUSELKUMAB
     Indication: Psoriatic arthropathy

REACTIONS (6)
  - Psoriatic arthropathy [Unknown]
  - Product dose omission issue [Unknown]
  - Product leakage [Unknown]
  - Product use issue [Unknown]
  - Psoriasis [Unknown]
  - Underdose [Unknown]

NARRATIVE: CASE EVENT DATE: 20241203
